FAERS Safety Report 12624282 (Version 1)
Quarter: 2016Q3

REPORT INFORMATION
  Report Type: Spontaneous
  Country: FR (occurrence: FR)
  Receive Date: 20160805
  Receipt Date: 20160805
  Transmission Date: 20161109
  Serious: Yes (Other)
  Sender: FDA-Public Use
  Company Number: FR-ROCHE-1800381

PATIENT
  Age: 59 Year
  Sex: Male

DRUGS (11)
  1. COTELLIC [Suspect]
     Active Substance: COBIMETINIB
     Dosage: 2 TABLETS
     Route: 048
  2. ALMOGRAN [Concomitant]
     Active Substance: ALMOTRIPTAN MALATE
  3. VOGALENE [Concomitant]
     Active Substance: METOPIMAZINE
  4. DUROGESIC [Concomitant]
     Active Substance: FENTANYL
  5. COTELLIC [Suspect]
     Active Substance: COBIMETINIB
     Indication: METASTATIC MALIGNANT MELANOMA
     Dosage: 3 TABLETS OF 20 MG A DAY
     Route: 048
     Dates: start: 20160504
  6. EFFERALGAN [Concomitant]
     Active Substance: ACETAMINOPHEN
     Dosage: SACHET.
     Route: 065
  7. ESCITALOPRAM [Concomitant]
     Active Substance: ESCITALOPRAM OXALATE
  8. SERESTA [Concomitant]
     Active Substance: OXAZEPAM
     Route: 065
  9. ABSTRAL [Concomitant]
     Active Substance: FENTANYL CITRATE
  10. ZELBORAF [Suspect]
     Active Substance: VEMURAFENIB
     Indication: METASTATIC MALIGNANT MELANOMA
     Dosage: 4 TABLETS OF 240 MG IN MORNING AND 4 TABLETS OF 240 MG IN EVENING.
     Route: 048
     Dates: start: 20160504
  11. ZELBORAF [Suspect]
     Active Substance: VEMURAFENIB
     Dosage: 3 TABLETS OF 240 MG IN MORNING AND 3 TABLETS OF 240 MG IN EVENING.
     Route: 048
     Dates: start: 201606

REACTIONS (3)
  - Neuropathy peripheral [Not Recovered/Not Resolved]
  - Photosensitivity reaction [Recovered/Resolved]
  - Uveitis [Recovering/Resolving]

NARRATIVE: CASE EVENT DATE: 20160514
